FAERS Safety Report 5464543-4 (Version None)
Quarter: 2007Q3

REPORT INFORMATION
  Report Type: 
  Country: None (occurrence: None)
  Receive Date: 20070921
  Receipt Date: 20070920
  Transmission Date: 20080115
  Serious: Yes (Hospitalization)
  Sender: FDA-Public Use
  Company Number: JP-BOEHRINGER INGELHEIM PHARMACEUTICALS, INC.-2007-BP-20697NB

PATIENT
  Sex: Male
  Weight: 52 kg

DRUGS (6)
  1. BI-SIFROL TABLETS [Suspect]
     Indication: PARKINSON'S DISEASE
     Route: 048
     Dates: start: 20040528
  2. FP [Concomitant]
     Indication: PARKINSON'S DISEASE
     Route: 048
     Dates: start: 20020115
  3. NEODOPASTON [Concomitant]
     Indication: PARKINSON'S DISEASE
     Route: 048
     Dates: start: 20001220
  4. SYMMETREL [Concomitant]
     Indication: PARKINSON'S DISEASE
     Route: 048
     Dates: start: 20000627
  5. CONSTAN [Concomitant]
     Route: 048
     Dates: start: 20011023
  6. DEPAS [Concomitant]
     Route: 048
     Dates: start: 20020730

REACTIONS (1)
  - INAPPROPRIATE ANTIDIURETIC HORMONE SECRETION [None]
